FAERS Safety Report 9245842 (Version 2)
Quarter: 2013Q2

REPORT INFORMATION
  Report Type: Spontaneous
  Country: CN (occurrence: CN)
  Receive Date: 20130422
  Receipt Date: 20130501
  Transmission Date: 20140414
  Serious: Yes (Hospitalization)
  Sender: FDA-Public Use
  Company Number: CN-NOVOPROD-375560

PATIENT
  Age: 62 Year
  Sex: Female
  Weight: 60 kg

DRUGS (4)
  1. NOVOMIX 30 PENFILL [Suspect]
     Indication: TYPE 2 DIABETES MELLITUS
     Dosage: 34 U, QD
     Route: 065
     Dates: start: 201303, end: 201303
  2. NOVOMIX 30 PENFILL [Suspect]
     Dosage: 18 U, QD
     Route: 065
     Dates: start: 20130320, end: 2013
  3. NOVOMIX 30 PENFILL [Suspect]
     Dosage: 24-26 U, QD
     Route: 065
     Dates: start: 2013
  4. VICTOZA [Concomitant]
     Indication: TYPE 2 DIABETES MELLITUS
     Dosage: 1.2 MG, QD
     Dates: start: 20130320

REACTIONS (2)
  - Hunger [Recovering/Resolving]
  - Blood glucose fluctuation [Recovered/Resolved]
